FAERS Safety Report 9415239 (Version 3)
Quarter: 2013Q3

REPORT INFORMATION
  Report Type: Report from Study
  Country: DE (occurrence: DE)
  Receive Date: 20130723
  Receipt Date: 20130815
  Transmission Date: 20140515
  Serious: Yes (Hospitalization)
  Sender: FDA-Public Use
  Company Number: PHHY2013DE077393

PATIENT
  Age: 62 Year
  Sex: Male

DRUGS (1)
  1. SANDOSTATIN LAR [Suspect]
     Indication: ACROMEGALY
     Dosage: 20 MG, EVERY 4 WEEKS
     Route: 030
     Dates: start: 20121213, end: 20130611

REACTIONS (2)
  - Alcohol problem [Unknown]
  - Alcohol withdrawal syndrome [Unknown]
